FAERS Safety Report 8545351-4 (Version None)
Quarter: 2012Q3

REPORT INFORMATION
  Report Type: 
  Country: None (occurrence: None)
  Receive Date: 20120719
  Receipt Date: 20120719
  Transmission Date: 20120928
  Serious: Yes (Hospitalization, Other)
  Sender: FDA-Public Use
  Company Number: None

PATIENT
  Age: 55 Year
  Sex: Male

DRUGS (6)
  1. CARVEDILOL [Suspect]
  2. BRILINTA [Suspect]
  3. LOW DOSE ASA [Concomitant]
  4. ATORVASTATIL [Concomitant]
  5. CARVEDILOL [Concomitant]
  6. LISINOPRIL [Concomitant]

REACTIONS (1)
  - ATRIOVENTRICULAR BLOCK FIRST DEGREE [None]
